FAERS Safety Report 8840561 (Version 1)
Quarter: 2012Q4

REPORT INFORMATION
  Report Type: 
  Country: FR (occurrence: FR)
  Receive Date: 20121015
  Receipt Date: 20121015
  Transmission Date: 20130627
  Serious: Yes (Other)
  Sender: FDA-Public Use
  Company Number: FR-GILEAD-2012-0061771

PATIENT
  Age: 16 Year
  Sex: Male

DRUGS (3)
  1. VISTIDE [Suspect]
     Indication: PRODUCT USED FOR UNKNOWN INDICATION
     Dosage: 300 mg, Q1Wk
     Route: 042
  2. PROBENECID [Concomitant]
     Indication: PRODUCT USED FOR UNKNOWN INDICATION
  3. CICLOSPORINE [Concomitant]
     Indication: PRODUCT USED FOR UNKNOWN INDICATION

REACTIONS (2)
  - Drug administration error [Recovered/Resolved]
  - Medication error [Recovered/Resolved]
